FAERS Safety Report 25110268 (Version 1)
Quarter: 2025Q1

REPORT INFORMATION
  Report Type: Spontaneous
  Country: US (occurrence: US)
  Receive Date: 20250324
  Receipt Date: 20250324
  Transmission Date: 20250409
  Serious: No
  Sender: GLAXOSMITHKLINE
  Company Number: US-GSK-US2025032157

PATIENT
  Sex: Male

DRUGS (1)
  1. NUCALA [Suspect]
     Active Substance: MEPOLIZUMAB
     Indication: Angiolymphoid hyperplasia with eosinophilia
     Dosage: 100 MG, Q4W
     Route: 058

REACTIONS (2)
  - Off label use [Unknown]
  - Product prescribing issue [Unknown]
